FAERS Safety Report 7225145-2 (Version None)
Quarter: 2011Q1

REPORT INFORMATION
  Report Type: 
  Country: None (occurrence: None)
  Receive Date: 20110113
  Receipt Date: 20110105
  Transmission Date: 20110831
  Serious: Yes (Other)
  Sender: FDA-Public Use
  Company Number: A0903337A

PATIENT
  Age: 48 Year
  Sex: Female

DRUGS (7)
  1. UNSPECIFIED THYROID MEDICATION [Concomitant]
  2. VICODIN [Concomitant]
  3. BENADRYL [Concomitant]
  4. PROPRANOLOL [Concomitant]
  5. LORAZEPAM [Concomitant]
  6. MAGNESIUM OXIDE [Concomitant]
  7. VENTOLIN [Suspect]
     Indication: ASTHMA
     Dosage: 1PUFF FOUR TIMES PER DAY
     Route: 055
     Dates: start: 20030101

REACTIONS (3)
  - PRODUCT QUALITY ISSUE [None]
  - DRUG INEFFECTIVE [None]
  - ASTHMA [None]
